FAERS Safety Report 5367866-2 (Version None)
Quarter: 2007Q2

REPORT INFORMATION
  Report Type: 
  Country: None (occurrence: None)
  Receive Date: 20070622
  Receipt Date: 20070613
  Transmission Date: 20071010
  Serious: Yes (Other)
  Sender: FDA-Public Use
  Company Number: US-ELI_LILLY_AND_COMPANY-US200706001050

PATIENT
  Age: 56 Year
  Sex: Male

DRUGS (24)
  1. CYMBALTA [Suspect]
     Indication: PAIN MANAGEMENT
     Dosage: 60 MG, DAILY (1/D)
  2. CYMBALTA [Interacting]
     Dosage: 30 MG, EACH MORNING
     Dates: start: 20060721, end: 20070429
  3. CYMBALTA [Interacting]
     Dosage: 30 MG, EACH EVENING
     Dates: start: 20060721, end: 20070429
  4. VYTORIN [Concomitant]
     Indication: HYPERLIPIDAEMIA
     Dosage: 1 D/F, DAILY (1/D)
  5. COUMADIN [Concomitant]
     Dosage: 2.5 MG, DAILY (1/D)
  6. COUMADIN [Concomitant]
     Dosage: 1 MG, DAILY (1/D)
  7. LIDODERM [Concomitant]
     Dosage: UNK MG, AS NEEDED
  8. NITROGLYCERIN [Concomitant]
     Dosage: UNK MG, AS NEEDED
     Route: 060
  9. NITROL [Concomitant]
     Indication: CORONARY ARTERY DISEASE
     Dosage: UNK MG, EACH MORNING
  10. PLAVIX [Concomitant]
     Indication: CORONARY ARTERY DISEASE
     Dosage: 75 MG, DAILY (1/D)
     Route: 048
  11. NEURONTIN [Concomitant]
     Indication: PAIN MANAGEMENT
     Dosage: 600 MG, 3/D
  12. TRICOR [Concomitant]
     Indication: HYPERLIPIDAEMIA
     Dosage: 145 MG, UNK
     Route: 048
  13. TOPROL-XL [Concomitant]
     Indication: CORONARY ARTERY DISEASE
     Dosage: 50 MG, DAILY (1/D)
     Route: 048
  14. REQUIP [Concomitant]
     Indication: RESTLESS LEGS SYNDROME
     Dosage: 3 MG, EACH EVENING
     Route: 048
  15. MAGNESIUM OXIDE [Concomitant]
     Indication: SUPPLEMENTATION THERAPY
     Dosage: 400 MG, 3/D
  16. OXYGEN [Concomitant]
     Indication: CHRONIC OBSTRUCTIVE PULMONARY DISEASE
  17. ZANTAC [Concomitant]
     Indication: GASTROOESOPHAGEAL REFLUX DISEASE
  18. ALBUTEROL [Concomitant]
     Indication: CHRONIC OBSTRUCTIVE PULMONARY DISEASE
  19. ASPIRIN [Concomitant]
     Dosage: 81 MG, DAILY (1/D)
     Route: 048
     Dates: start: 20070427
  20. ZETIA [Concomitant]
     Dosage: 10 MG, DAILY (1/D)
     Route: 048
     Dates: start: 20070427
  21. ZOCOR [Concomitant]
     Dosage: 40 MG, DAILY (1/D)
     Route: 048
  22. NITRO-DUR [Concomitant]
     Dosage: 0.4 MG, EACH MORNING
     Dates: start: 20070427
  23. SPIRONOLACTONE [Concomitant]
     Dosage: 25 MG, DAILY (1/D)
     Route: 048
     Dates: start: 20070427
  24. LISINOPRIL [Concomitant]
     Dosage: 2.5 MG, DAILY (1/D)
     Route: 048

REACTIONS (3)
  - DRUG INTERACTION [None]
  - INTERNATIONAL NORMALISED RATIO INCREASED [None]
  - NEPHROLITHIASIS [None]
